FAERS Safety Report 24242536 (Version 1)
Quarter: 2024Q3

REPORT INFORMATION
  Report Type: Spontaneous
  Country: US (occurrence: None)
  Receive Date: 20240822
  Receipt Date: 20240822
  Transmission Date: 20241017
  Serious: Yes (Other)
  Sender: Public
  Company Number: None

PATIENT
  Age: 74 Year
  Sex: Female

DRUGS (1)
  1. LENALIDOMIDE [Suspect]
     Active Substance: LENALIDOMIDE
     Indication: Plasma cell myeloma in remission
     Dosage: FREQUENCY : DAILY;?

REACTIONS (12)
  - Neck pain [None]
  - Joint swelling [None]
  - Arthralgia [None]
  - Pruritus [None]
  - Blood pressure fluctuation [None]
  - Decreased appetite [None]
  - Back disorder [None]
  - Gait disturbance [None]
  - Weight control [None]
  - Madarosis [None]
  - Madarosis [None]
  - Intentional dose omission [None]
